FAERS Safety Report 7297751-0 (Version None)
Quarter: 2011Q1

REPORT INFORMATION
  Report Type: 
  Country: None (occurrence: None)
  Receive Date: 20110214
  Receipt Date: 20110214
  Transmission Date: 20110831
  Serious: No
  Sender: FDA-Public Use
  Company Number: None

PATIENT
  Sex: Female
  Weight: 12.7007 kg

DRUGS (1)
  1. OSELTAMIVIR [Suspect]
     Indication: INFLUENZA
     Dosage: 2 ML TWICE DAILY PO
     Route: 048
     Dates: start: 20110210, end: 20110212

REACTIONS (1)
  - ABNORMAL BEHAVIOUR [None]
